FAERS Safety Report 11099689 (Version 1)
Quarter: 2015Q2

REPORT INFORMATION
  Report Type: Spontaneous
  Country: IT (occurrence: IT)
  Receive Date: 20150508
  Receipt Date: 20150508
  Transmission Date: 20150821
  Serious: Yes (Hospitalization, Other)
  Sender: FDA-Public Use
  Company Number: IT-009507513-1504ITA024048

PATIENT
  Age: 55 Year
  Sex: Male
  Weight: 93 kg

DRUGS (10)
  1. OMBITASVIR [Suspect]
     Active Substance: OMBITASVIR
     Dosage: UNK
     Dates: start: 20150316
  2. LASITONE [Concomitant]
     Active Substance: FUROSEMIDE\SPIRONOLACTONE
     Dosage: UNK
     Route: 048
     Dates: start: 20130101
  3. KONAKION [Concomitant]
     Active Substance: PHYTONADIONE
     Dosage: UNK
     Dates: start: 20130101
  4. ABT-450 [Suspect]
     Active Substance: VERUPREVIR
     Dosage: UNK
     Dates: start: 20150316
  5. NORMIX [Concomitant]
     Active Substance: RIFAXIMIN
     Dosage: UNK
     Route: 048
     Dates: start: 20130101
  6. RITONAVIR. [Suspect]
     Active Substance: RITONAVIR
     Indication: CHRONIC HEPATITIS C
     Dosage: UNK, QD
     Route: 048
     Dates: start: 20150316
  7. DASABUVIR [Suspect]
     Active Substance: DASABUVIR
     Dosage: UNK, BID
     Dates: start: 20150316
  8. REBETOL [Suspect]
     Active Substance: RIBAVIRIN
     Indication: CHRONIC HEPATITIS C
     Dosage: UNK, QD
     Route: 048
     Dates: start: 20150316
  9. KANRENOL [Concomitant]
     Active Substance: CANRENOATE POTASSIUM
     Dosage: UNK, 1 DOSE UNIT
     Route: 048
     Dates: start: 20130101
  10. LUCEN (ESOMEPRAZOLE SODIUM) [Concomitant]
     Dosage: UNK
     Dates: start: 20130101

REACTIONS (4)
  - Asthenia [Recovering/Resolving]
  - Lethargy [Recovering/Resolving]
  - Hepatic encephalopathy [Recovering/Resolving]
  - Somnolence [Recovering/Resolving]

NARRATIVE: CASE EVENT DATE: 20150402
